FAERS Safety Report 10409136 (Version 1)
Quarter: 2014Q3

REPORT INFORMATION
  Report Type: Spontaneous
  Country: US (occurrence: None)
  Receive Date: 20140825
  Receipt Date: 20140825
  Transmission Date: 20150326
  Serious: Yes (Disabling, Other)
  Sender: FDA-Public Use
  Company Number: None

PATIENT
  Age: 47 Year
  Sex: Female
  Weight: 67.13 kg

DRUGS (1)
  1. CHLORHEXIDINE GLUCONATE. [Suspect]
     Active Substance: CHLORHEXIDINE GLUCONATE
     Indication: GINGIVAL INFLAMMATION
     Dosage: RINSE AFTER EACH MEAL  AS NEEDED  TAKEN BY MOUTH
     Route: 048
     Dates: start: 20140114, end: 20140117

REACTIONS (5)
  - Drug hypersensitivity [None]
  - Weight decreased [None]
  - Dysgeusia [None]
  - Impaired healing [None]
  - Nerve injury [None]

NARRATIVE: CASE EVENT DATE: 20140114
